FAERS Safety Report 8305097-4 (Version None)
Quarter: 2012Q2

REPORT INFORMATION
  Report Type: 
  Country: None (occurrence: None)
  Receive Date: 20120413
  Receipt Date: 20120330
  Transmission Date: 20120825
  Serious: Yes (Hospitalization)
  Sender: FDA-Public Use
  Company Number: 2012031807

PATIENT
  Age: 63 Year
  Sex: Male
  Weight: 120.6568 kg

DRUGS (13)
  1. COENZYME Q10 [Concomitant]
  2. HIZENTRA [Suspect]
     Indication: IMMUNODEFICIENCY
     Dosage: (20 G 1X/WEEK SUBCUTANEOUS)
     Route: 058
     Dates: start: 20120322, end: 20120322
  3. HIZENTRA [Suspect]
     Indication: IMMUNODEFICIENCY
     Dosage: (20 G 1X/WEEK SUBCUTANEOUS)
     Route: 058
     Dates: start: 20110325
  4. METOPROLOL TARTRATE [Concomitant]
  5. ASPIRIN [Concomitant]
  6. ALLOPURINOL [Concomitant]
  7. COLCRYS [Concomitant]
  8. CRESTOR [Concomitant]
  9. PLAVIX [Concomitant]
  10. MUCINEX [Concomitant]
  11. ACETAMINOPHEN [Concomitant]
  12. TUSSIONEX (TUSSIONEX /00140501/) [Concomitant]
  13. FISH OIL (FISH OIL) [Concomitant]

REACTIONS (2)
  - PROSTATE INFECTION [None]
  - CATHETERISATION CARDIAC [None]
